FAERS Safety Report 8674308 (Version 3)
Quarter: 2012Q4

REPORT INFORMATION
  Report Type: 
  Country: CO (occurrence: CO)
  Receive Date: 20120720
  Receipt Date: 20120924
  Transmission Date: 20130627
  Serious: Yes (Hospitalization, Disabling, Other)
  Sender: FDA-Public Use
  Company Number: CO-AMGEN-COLSP2012043614

PATIENT
  Age: 79 Year
  Sex: Female

DRUGS (10)
  1. ENBREL [Suspect]
     Indication: RHEUMATOID ARTHRITIS
     Dosage: 50 mg, weekly
     Route: 048
     Dates: start: 200910, end: 200912
  2. ENBREL [Suspect]
     Dosage: 50 mg, weekly
     Route: 048
     Dates: start: 201007, end: 20100901
  3. OLMETEC HCT [Suspect]
     Indication: HYPERTENSION
     Dosage: 40/12.5 mg, 1x/day
     Route: 048
     Dates: start: 2006
  4. METHOTREXATE [Suspect]
     Indication: ARTHRITIS
     Dosage: UNK
     Route: 048
     Dates: start: 2000, end: 200910
  5. VASOTON /00014302/ [Suspect]
     Indication: VARICOSE VEIN
     Dosage: 300 mg, qd
     Route: 048
     Dates: start: 201007, end: 201007
  6. PREDNISOLONE [Concomitant]
     Indication: PAIN
     Dosage: 5 mg, 1x/day, as needed
     Route: 048
     Dates: start: 2000, end: 200910
  7. PREDNISOLONE [Concomitant]
     Indication: INFLAMMATION
     Dosage: UNK
  8. PREDNISOLONE [Concomitant]
     Dosage: 5 mg, as needed
     Route: 048
     Dates: start: 200910
  9. OMEPRAZOLE [Concomitant]
     Indication: GASTRITIS
     Dosage: 20 mg, 1x/day
     Dates: start: 2006
  10. RANITIDINE [Concomitant]
     Indication: GASTRITIS
     Dosage: 300 mg, 1x/day
     Dates: start: 2006

REACTIONS (9)
  - Transaminases abnormal [Unknown]
  - Headache [Not Recovered/Not Resolved]
  - Blood pressure increased [Unknown]
  - Gait disturbance [Not Recovered/Not Resolved]
  - Urinary tract infection [Recovered/Resolved]
  - Drug ineffective [Not Recovered/Not Resolved]
  - Arthritis [Not Recovered/Not Resolved]
  - Varicophlebitis [Not Recovered/Not Resolved]
  - Gastritis [Unknown]
